FAERS Safety Report 18682143 (Version 1)
Quarter: 2020Q4

REPORT INFORMATION
  Report Type: Spontaneous
  Country: US (occurrence: US)
  Receive Date: 20201229
  Receipt Date: 20201229
  Transmission Date: 20210114
  Serious: No
  Sender: FDA-Public Use
  Company Number: None

PATIENT
  Age: 48 Year
  Sex: Male

DRUGS (1)
  1. OXYCODONE HCL 15MG [Suspect]
     Active Substance: OXYCODONE HYDROCHLORIDE
     Indication: PAIN
     Dates: start: 20201224

REACTIONS (4)
  - Product substitution issue [None]
  - Seasonal allergy [None]
  - Inadequate analgesia [None]
  - Eye swelling [None]

NARRATIVE: CASE EVENT DATE: 20201224
